FAERS Safety Report 24160971 (Version 1)
Quarter: 2024Q3

REPORT INFORMATION
  Report Type: Spontaneous
  Country: MY (occurrence: MY)
  Receive Date: 20240801
  Receipt Date: 20240801
  Transmission Date: 20241016
  Serious: Yes (Other)
  Sender: NOVARTIS
  Company Number: MY-002147023-NVSC2024MY155525

PATIENT

DRUGS (2)
  1. INCLISIRAN [Suspect]
     Active Substance: INCLISIRAN
     Indication: Type IIa hyperlipidaemia
     Dosage: UNK (FIRST INJECTION)
     Route: 065
     Dates: start: 202312, end: 202312
  2. INCLISIRAN [Suspect]
     Active Substance: INCLISIRAN
     Dosage: UNK (SECOND DOSE)
     Route: 065
     Dates: start: 202404, end: 202404

REACTIONS (2)
  - Hepatic enzyme increased [Unknown]
  - Therapy non-responder [Unknown]
